FAERS Safety Report 14033485 (Version 1)
Quarter: 2017Q4

REPORT INFORMATION
  Report Type: Spontaneous
  Country: BR (occurrence: BR)
  Receive Date: 20171003
  Receipt Date: 20171003
  Transmission Date: 20180321
  Serious: Yes (Other)
  Sender: FDA-Public Use
  Company Number: PHHY2017BR097297

PATIENT
  Sex: Female
  Weight: 65 kg

DRUGS (3)
  1. ACICLOVIR SANDOZ [Suspect]
     Active Substance: ACYCLOVIR
     Indication: STOMATITIS
     Dosage: 5 DF, QD
     Route: 048
  2. ACICLOVIR SANDOZ [Suspect]
     Active Substance: ACYCLOVIR
     Indication: HERPES VIRUS INFECTION
  3. SELENE [Concomitant]
     Indication: CONTRACEPTION
     Dosage: 1 DF, QD
     Route: 048

REACTIONS (4)
  - Condition aggravated [Recovered/Resolved]
  - Drug ineffective [Recovered/Resolved]
  - Herpes virus infection [Recovered/Resolved]
  - Cheilitis [Recovered/Resolved]
